FAERS Safety Report 23451201 (Version 1)
Quarter: 2024Q1

REPORT INFORMATION
  Report Type: Spontaneous
  Country: GB (occurrence: PL)
  Receive Date: 20240129
  Receipt Date: 20240129
  Transmission Date: 20240410
  Serious: Yes (Other)
  Sender: FDA-Public Use
  Company Number: None

PATIENT

DRUGS (1)
  1. LATUDA [Suspect]
     Active Substance: LURASIDONE HYDROCHLORIDE
     Indication: Product used for unknown indication
     Dosage: 37 MG, QD
     Route: 050
     Dates: start: 20230923, end: 20230924

REACTIONS (10)
  - Loss of personal independence in daily activities [Recovering/Resolving]
  - Cognitive disorder [Not Recovered/Not Resolved]
  - Balance disorder [Recovering/Resolving]
  - Indifference [Recovering/Resolving]
  - Visual impairment [Recovering/Resolving]
  - Malaise [Not Recovered/Not Resolved]
  - Disturbance in attention [Not Recovered/Not Resolved]
  - Mental status changes [Recovering/Resolving]
  - Depression [Not Recovered/Not Resolved]
  - Vision blurred [Recovering/Resolving]

NARRATIVE: CASE EVENT DATE: 20230923
